FAERS Safety Report 9255443 (Version 2)
Quarter: 2013Q2

REPORT INFORMATION
  Report Type: Spontaneous
  Country: US (occurrence: None)
  Receive Date: 20130418
  Receipt Date: 20130429
  Transmission Date: 20140414
  Serious: Yes (Hospitalization)
  Sender: FDA-Public Use
  Company Number: 13-F-US-00104

PATIENT
  Age: 83 Year
  Sex: Male
  Weight: 68.9 kg

DRUGS (13)
  1. FOLOTYN [Suspect]
     Indication: PERIPHERAL T-CELL LYMPHOMA UNSPECIFIED
     Route: 042
     Dates: start: 20130301, end: 20130301
  2. PREDNISONE (PREDNISONE) [Suspect]
     Indication: PERIPHERAL T-CELL LYMPHOMA UNSPECIFIED
     Dosage: ON DAY 1
     Route: 051
     Dates: start: 20130215, end: 20130215
  3. VINCRISTINE (VINCRISTINE) (UNKNOWN) [Suspect]
     Indication: PERIPHERAL T-CELL LYMPHOMA UNSPECIFIED
     Dosage: ON DAY 1
     Route: 042
     Dates: start: 20130215, end: 20130215
  4. CYCLOPHOSPHAMIDE (CYCLOPHOSPHAMIDE) [Suspect]
     Indication: PERIPHERAL T-CELL LYMPHOMA UNSPECIFIED
     Dosage: ON DAY 1
     Route: 042
     Dates: start: 20130215, end: 20130215
  5. ETOPOSIDE (ETOPOSIDE) [Suspect]
     Indication: PERIPHERAL T-CELL LYMPHOMA UNSPECIFIED
     Dosage: 100 MG/M2, ON DAY 1, 2, 3, INTRAVENOUS
     Route: 042
     Dates: start: 20130215, end: 20130215
  6. ARTIFICIAL TEARS  /00445101/ (HYPROMELLOSE) SOLUTION (EXCEPT SYRUP) [Concomitant]
  7. BENADRYL  /00000402/ (DIPHENHYDRAMINE HYDROCHLORIDE) [Concomitant]
  8. IBUPROFEN (IBUPROFEN) [Concomitant]
  9. LOVASTATIN (LOVASTATIN) [Concomitant]
  10. PEPTOBISMOL (BISMUTH SUBSALICYLATE) TABLET [Concomitant]
  11. MIRALAX (MACROGOL) POWDER (EXCEPT [DPO]) [Concomitant]
  12. COMPAZINE  /00013302/ (PROCHLORPERAZINE EDISYLATE) TABLET, 10 MG [Concomitant]
  13. TRAVATAN Z (TRAVOPROST) [Concomitant]

REACTIONS (6)
  - Pneumonia [None]
  - Myalgia [None]
  - Haemoglobin decreased [None]
  - Platelet count increased [None]
  - Blood lactate dehydrogenase increased [None]
  - Sinus tachycardia [None]
